FAERS Safety Report 5280300-6 (Version None)
Quarter: 2007Q1

REPORT INFORMATION
  Report Type: 
  Country: None (occurrence: None)
  Receive Date: 20070329
  Receipt Date: 20070323
  Transmission Date: 20070707
  Serious: Yes (Life-Threatening, Hospitalization, Disabling)
  Sender: FDA-Public Use
  Company Number: JP-JPN-A200700939

PATIENT
  Age: 87 Year
  Sex: Female
  Weight: 38 kg

DRUGS (6)
  1. ALLOPURINOL [Suspect]
     Dosage: 100MG PER DAY
     Route: 048
     Dates: start: 20070208
  2. ZANTAC [Suspect]
     Dosage: 150MG PER DAY
     Route: 048
     Dates: start: 20070208
  3. RENIVACE [Concomitant]
     Indication: HYPERTENSION
     Dosage: 5MG PER DAY
     Route: 048
     Dates: start: 20020927
  4. ARTIST [Concomitant]
     Indication: CARDIAC FAILURE
     Dosage: 10MG PER DAY
     Route: 048
     Dates: start: 20000303
  5. AMLODIN [Concomitant]
     Indication: HYPERTENSION
     Dosage: 5MG PER DAY
     Route: 048
     Dates: start: 19950521
  6. UNKNOWN MEDICATION [Concomitant]
     Indication: GASTRITIS
     Dosage: 2G THREE TIMES PER DAY
     Route: 048
     Dates: start: 20070119

REACTIONS (8)
  - ANOREXIA [None]
  - BLOOD CREATINE PHOSPHOKINASE INCREASED [None]
  - DELIRIUM [None]
  - DEPRESSED LEVEL OF CONSCIOUSNESS [None]
  - RENAL FAILURE ACUTE [None]
  - RHABDOMYOLYSIS [None]
  - SHOCK [None]
  - WHITE BLOOD CELL COUNT INCREASED [None]
